FAERS Safety Report 10380545 (Version 2)
Quarter: 2014Q4

REPORT INFORMATION
  Report Type: Spontaneous
  Country: JP (occurrence: JP)
  Receive Date: 20140813
  Receipt Date: 20141103
  Transmission Date: 20150528
  Serious: Yes (Death)
  Sender: FDA-Public Use
  Company Number: PHHY2013JP160598

PATIENT
  Age: 83 Year
  Sex: Male

DRUGS (1)
  1. GLIVEC [Suspect]
     Active Substance: IMATINIB MESYLATE
     Indication: CHRONIC MYELOID LEUKAEMIA
     Dosage: 200 MG, QD
     Route: 048
     Dates: start: 20080924, end: 20110726

REACTIONS (3)
  - Lung neoplasm malignant [Fatal]
  - Second primary malignancy [Fatal]
  - Colon cancer [Fatal]

NARRATIVE: CASE EVENT DATE: 201107
